FAERS Safety Report 8076839-0 (Version None)
Quarter: 2012Q1

REPORT INFORMATION
  Report Type: 
  Country: None (occurrence: None)
  Receive Date: 20120127
  Receipt Date: 20120117
  Transmission Date: 20120608
  Serious: Yes (Hospitalization)
  Sender: FDA-Public Use
  Company Number: FR-MERCK-1201USA02794

PATIENT
  Age: 64 Year
  Sex: Male

DRUGS (11)
  1. ATENOLOL [Suspect]
     Route: 048
  2. BIPERIDYS [Concomitant]
     Route: 065
  3. ORENCIA [Suspect]
     Indication: RHEUMATOID ARTHRITIS
     Route: 042
     Dates: start: 20080101, end: 20111017
  4. LANSOPRAZOLE [Suspect]
     Route: 048
  5. ALPRAZOLAM [Concomitant]
     Route: 065
  6. TANAKAN [Concomitant]
     Route: 065
  7. LEGALON [Concomitant]
     Route: 065
  8. ZETIA [Suspect]
     Route: 048
  9. LAMALINE (NEW FORMULA) [Suspect]
     Route: 048
  10. ETIOVEN [Concomitant]
     Route: 065
  11. ESCITALOPRAM OXALATE [Suspect]
     Route: 048

REACTIONS (1)
  - GLOMERULONEPHRITIS MEMBRANOUS [None]
